FAERS Safety Report 17296503 (Version 1)
Quarter: 2020Q1

REPORT INFORMATION
  Report Type: Report from Study
  Country: ES (occurrence: ES)
  Receive Date: 20200121
  Receipt Date: 20200121
  Transmission Date: 20200409
  Serious: Yes (Life-Threatening, Hospitalization)
  Sender: FDA-Public Use
  Company Number: ES-MYLANLABS-2020M1004968

PATIENT
  Age: 40 Year
  Sex: Female

DRUGS (3)
  1. AMCHAFIBRIN 500 MG COMPRIMIDOS, ?CIDO TRANEX?MICO [Suspect]
     Active Substance: TRANEXAMIC ACID
     Indication: METRORRHAGIA
     Dosage: 3 GRAM, QD
     Route: 048
     Dates: start: 20170903, end: 20171104
  2. TARDYFERON [Concomitant]
     Active Substance: FERROUS SULFATE
     Indication: ANAEMIA
     Dosage: 80 MILLIGRAM, QD
     Route: 048
     Dates: start: 20171031, end: 20171104
  3. NORETISTERONACETAT [Interacting]
     Active Substance: NORETHINDRONE ACETATE
     Indication: UTERINE LEIOMYOMA
     Dosage: 10 MILLIGRAM, QD
     Route: 048
     Dates: start: 20170927, end: 20171104

REACTIONS (2)
  - Cerebral thrombosis [Recovering/Resolving]
  - Drug interaction [Unknown]

NARRATIVE: CASE EVENT DATE: 20171103
